FAERS Safety Report 4683760-4 (Version None)
Quarter: 2005Q2

REPORT INFORMATION
  Report Type: 
  Country: None (occurrence: None)
  Receive Date: 20050602
  Receipt Date: 20050124
  Transmission Date: 20051028
  Serious: No
  Sender: FDA-Public Use
  Company Number: USA050189099

PATIENT
  Sex: Female

DRUGS (5)
  1. CYMBALTA [Suspect]
     Indication: DIABETIC NEUROPATHY
     Dosage: 60 MG IN THE MORNING
     Dates: start: 20050121
  2. ATENOLOL [Concomitant]
  3. ADALAT (NIFEDIPINE PA) [Concomitant]
  4. HYDROCHLOROTHAZIDE [Concomitant]
  5. GLIPIZIDE [Concomitant]

REACTIONS (3)
  - DYSKINESIA [None]
  - NAUSEA [None]
  - PRURITUS [None]
